FAERS Safety Report 7358407-9 (Version None)
Quarter: 2011Q1

REPORT INFORMATION
  Report Type: 
  Country: None (occurrence: None)
  Receive Date: 20110307
  Receipt Date: 20100121
  Transmission Date: 20110831
  Serious: No
  Sender: FDA-Public Use
  Company Number: AEUSA201000020

PATIENT
  Age: 68 Year
  Sex: Male
  Weight: 70.7611 kg

DRUGS (7)
  1. LOVASTATIN [Concomitant]
  2. ASPIRIN [Concomitant]
  3. PROLASTIN [Suspect]
     Indication: ALPHA-1 ANTI-TRYPSIN DEFICIENCY
     Dosage: 60 MG/KG;QW;IV
     Route: 042
     Dates: start: 20090801, end: 20100120
  4. ADVAIR DISKUS 100/50 [Concomitant]
  5. ALBUTEROL [Concomitant]
  6. FLOMAX /01280302/ [Concomitant]
  7. ATACAND [Concomitant]

REACTIONS (2)
  - URTICARIA [None]
  - BLOOD PRESSURE INCREASED [None]
